FAERS Safety Report 26013546 (Version 3)
Quarter: 2025Q4

REPORT INFORMATION
  Report Type: Report from Study
  Country: US (occurrence: US)
  Receive Date: 20251107
  Receipt Date: 20251230
  Transmission Date: 20260118
  Serious: Yes (Life-Threatening)
  Sender: VERONA PHARMA
  Company Number: US-VERONA PHARMA-VER-009990

PATIENT
  Age: 67 Year
  Sex: Male

DRUGS (7)
  1. OHTUVAYRE [Suspect]
     Active Substance: ENSIFENTRINE
     Indication: Product used for unknown indication
     Dosage: 3 MILLIGRAM, BID (ONCE IN THE MORNING AND ONCE IN THE EVENING)
     Dates: start: 20250927, end: 20251010
  2. FLUTICASONE PROPIONATE [Concomitant]
     Active Substance: FLUTICASONE PROPIONATE
     Indication: Product used for unknown indication
     Dosage: 50 MILLIGRAM, QD (1 SPRAY EACH NOSTRIL ONCE A DAY)
  3. CETIRIZINE HYDROCHLORIDE [Concomitant]
     Active Substance: CETIRIZINE HYDROCHLORIDE
     Indication: Product used for unknown indication
     Dosage: 10 MILLIGRAM, QD (ONE TABLET ONE A DAY)
  4. FOLIC ACID [Concomitant]
     Active Substance: FOLIC ACID
     Indication: Product used for unknown indication
     Dosage: 1 MILLIGRAM
  5. JARDIANCE [Concomitant]
     Active Substance: EMPAGLIFLOZIN
     Indication: Product used for unknown indication
     Dosage: 10 MILLIGRAM
  6. ALBUTEROL\IPRATROPIUM [Concomitant]
     Active Substance: ALBUTEROL\IPRATROPIUM
     Indication: Product used for unknown indication
     Dosage: EVERY 6 HOURS
  7. TRELEGY ELLIPTA [Concomitant]
     Active Substance: FLUTICASONE FUROATE\UMECLIDINIUM BROMIDE\VILANTEROL TRIFENATATE
     Indication: Product used for unknown indication
     Dosage: UNK (1 PUFF INHALATION), 200

REACTIONS (1)
  - Dyspnoea [Recovered/Resolved]

NARRATIVE: CASE EVENT DATE: 20251010
